FAERS Safety Report 16957694 (Version 4)
Quarter: 2020Q2

REPORT INFORMATION
  Report Type: Report from Study
  Country: US (occurrence: US)
  Receive Date: 20191024
  Receipt Date: 20200422
  Transmission Date: 20200713
  Serious: Yes (Hospitalization, Other)
  Sender: FDA-Public Use
  Company Number: NVSC2019US014246

PATIENT
  Age: 77 Year
  Sex: Male

DRUGS (1)
  1. GILENYA [Suspect]
     Active Substance: FINGOLIMOD HYDROCHLORIDE
     Indication: MULTIPLE SCLEROSIS
     Dosage: 0.5 MG, QD
     Route: 048
     Dates: start: 20191015

REACTIONS (8)
  - Memory impairment [Unknown]
  - Drug ineffective [Unknown]
  - Atrial fibrillation [Unknown]
  - Visual impairment [Unknown]
  - Feeling jittery [Unknown]
  - Muscle disorder [Unknown]
  - Heart rate decreased [Recovering/Resolving]
  - Heart rate irregular [Unknown]

NARRATIVE: CASE EVENT DATE: 20191015
